FAERS Safety Report 9295616 (Version 1)
Quarter: 2013Q1

REPORT INFORMATION
  Report Type: Spontaneous
  Country: US (occurrence: None)
  Receive Date: 20130107
  Receipt Date: 20130107
  Transmission Date: 20140127
  Serious: Yes (Hospitalization, Other)
  Sender: FDA-Public Use
  Company Number: PHHY2012US100602

PATIENT
  Age: 59 Year
  Sex: Female

DRUGS (7)
  1. GILENYA [Suspect]
     Indication: MULTIPLE SCLEROSIS
     Route: 048
     Dates: start: 20110622, end: 20120123
  2. WELLBUTRIN (BUPROPION HYDROCHLORIDE) [Concomitant]
  3. NEURONTIN (GABAPENTIN) [Concomitant]
  4. MIRAPEX (PRAMIPEXOLE DIHYDROCHLORIDE) [Concomitant]
  5. CYMBALTA (DULOXETINE HYDROCHLORIDE) [Concomitant]
  6. PERCOCET [Suspect]
  7. ATIVAN (LORAZEPAM) [Concomitant]

REACTIONS (7)
  - Multiple sclerosis relapse [None]
  - Pneumonia [None]
  - Bronchitis [None]
  - Immune system disorder [None]
  - Influenza [None]
  - Nasopharyngitis [None]
  - Malaise [None]
